FAERS Safety Report 25926279 (Version 2)
Quarter: 2025Q4

REPORT INFORMATION
  Report Type: Spontaneous
  Country: US (occurrence: US)
  Receive Date: 20251015
  Receipt Date: 20251118
  Transmission Date: 20260118
  Serious: No
  Sender: DR REDDYS
  Company Number: US-DRL-USA-USA/2025/10/015473

PATIENT
  Age: 57 Year
  Sex: Female
  Weight: 58.05 kg

DRUGS (1)
  1. NICOTINE TRANSDERMAL SYSTEM [Suspect]
     Active Substance: NICOTINE
     Indication: Smoking cessation therapy
     Dosage: DOSE: 1 PATCH?NICOTINE TRANSDERMAL SYSTEM STEP 1 21MG
     Route: 062
     Dates: start: 20250924

REACTIONS (4)
  - Application site burn [Not Recovered/Not Resolved]
  - Application site vesicles [Not Recovered/Not Resolved]
  - Application site erythema [Not Recovered/Not Resolved]
  - Application site wound [Not Recovered/Not Resolved]

NARRATIVE: CASE EVENT DATE: 20250925
